FAERS Safety Report 7643905-0 (Version None)
Quarter: 2011Q3

REPORT INFORMATION
  Report Type: 
  Country: None (occurrence: None)
  Receive Date: 20110729
  Receipt Date: 20110315
  Transmission Date: 20111222
  Serious: No
  Sender: FDA-Public Use
  Company Number: US-GLAXOSMITHKLINE-A0919247A

PATIENT
  Age: 59 Year
  Sex: Female

DRUGS (1)
  1. IMITREX [Suspect]
     Indication: PRODUCT USED FOR UNKNOWN INDICATION
     Dosage: 100MG UNKNOWN
     Route: 065
     Dates: start: 20110204, end: 20110315

REACTIONS (1)
  - ILL-DEFINED DISORDER [None]
